FAERS Safety Report 6541075-3 (Version None)
Quarter: 2010Q1

REPORT INFORMATION
  Report Type: 
  Country: None (occurrence: None)
  Receive Date: 20100118
  Receipt Date: 20100106
  Transmission Date: 20100710
  Serious: Yes (Other)
  Sender: FDA-Public Use
  Company Number: US-BAYER-200943558NA

PATIENT
  Age: 55 Year
  Sex: Male

DRUGS (5)
  1. BETASERON [Suspect]
     Indication: DRUG USE FOR UNKNOWN INDICATION
     Dosage: TOTAL DAILY DOSE: 0.3 MG
     Route: 058
     Dates: start: 20050801
  2. HYDROCHLOROTHIAZIDE [Concomitant]
     Indication: HYPERTENSION
  3. LEVOXYL [Concomitant]
     Indication: THYROID DISORDER
  4. UROXISOL [Concomitant]
     Indication: PROSTATOMEGALY
  5. AMLODIPINE [Concomitant]
     Indication: HYPERTENSION

REACTIONS (1)
  - PROSTATE CANCER [None]
